FAERS Safety Report 25703109 (Version 1)
Quarter: 2025Q3

REPORT INFORMATION
  Report Type: Spontaneous
  Country: CA (occurrence: CA)
  Receive Date: 20250819
  Receipt Date: 20250819
  Transmission Date: 20251020
  Serious: Yes (Other)
  Sender: TAKEDA
  Company Number: CA-TAKEDA-2025TUS056310

PATIENT
  Age: 55 Year
  Sex: Female
  Weight: 65 kg

DRUGS (1)
  1. VYVANSE [Suspect]
     Active Substance: LISDEXAMFETAMINE DIMESYLATE
     Indication: Attention deficit hyperactivity disorder
     Dosage: 30 MILLIGRAM, QD
     Dates: start: 20241015, end: 20250209

REACTIONS (9)
  - Arthralgia [Recovered/Resolved]
  - Hypoaesthesia [Unknown]
  - Carpal tunnel syndrome [Unknown]
  - Ulnar tunnel syndrome [Unknown]
  - Peripheral coldness [Unknown]
  - Limb discomfort [Unknown]
  - Joint stiffness [Unknown]
  - Rheumatoid arthritis [Unknown]
  - Autoimmune arthritis [Unknown]

NARRATIVE: CASE EVENT DATE: 20241015
